FAERS Safety Report 5255022-8 (Version None)
Quarter: 2007Q1

REPORT INFORMATION
  Report Type: 
  Country: None (occurrence: None)
  Receive Date: 20070305
  Receipt Date: 20070219
  Transmission Date: 20070707
  Serious: Yes (Hospitalization)
  Sender: FDA-Public Use
  Company Number: US-AMGEN-US206924

PATIENT
  Sex: Female

DRUGS (5)
  1. ENBREL [Suspect]
     Indication: RHEUMATOID ARTHRITIS
     Route: 058
     Dates: start: 20051101
  2. PREDNISONE [Concomitant]
     Route: 065
     Dates: start: 19940101
  3. FOSAMAX [Concomitant]
     Route: 065
     Dates: start: 20030101
  4. FENTANYL [Concomitant]
     Route: 065
     Dates: start: 20040101
  5. VICODIN [Concomitant]
     Route: 065
     Dates: start: 20050101

REACTIONS (1)
  - FIBULA FRACTURE [None]
